FAERS Safety Report 5490477-5 (Version None)
Quarter: 2007Q4

REPORT INFORMATION
  Report Type: 
  Country: None (occurrence: None)
  Receive Date: 20071017
  Receipt Date: 20071017
  Transmission Date: 20080405
  Serious: Yes (Hospitalization)
  Sender: FDA-Public Use
  Company Number: None

PATIENT
  Age: 54 Year
  Sex: Male

DRUGS (1)
  1. BACLOFEN [Suspect]
     Indication: HICCUPS
     Dosage: 20MG  TID  PO
     Route: 048
     Dates: start: 20070920, end: 20070922

REACTIONS (5)
  - CONFUSIONAL STATE [None]
  - PNEUMONIA [None]
  - RENAL FAILURE [None]
  - RESPIRATORY DISTRESS [None]
  - SOMNOLENCE [None]
